FAERS Safety Report 7729597-0 (Version None)
Quarter: 2011Q3

REPORT INFORMATION
  Report Type: 
  Country: None (occurrence: None)
  Receive Date: 20110906
  Receipt Date: 20110826
  Transmission Date: 20111222
  Serious: Yes (Hospitalization, Other)
  Sender: FDA-Public Use
  Company Number: US-BAYER-2010-008918

PATIENT
  Age: 22 Year
  Sex: Female
  Weight: 67 kg

DRUGS (8)
  1. IBUPROFEN (ADVIL) [Concomitant]
  2. ASCORBIC ACID [Concomitant]
  3. EXCEDRIN (MIGRAINE) [Concomitant]
  4. PREVACID [Concomitant]
  5. ALLEGRA [Concomitant]
     Indication: MULTIPLE ALLERGIES
     Dosage: UNK
     Dates: start: 19950101
  6. MOTRIN [Concomitant]
  7. YASMIN [Suspect]
     Indication: ACNE
     Dosage: UNK
     Dates: start: 20060130, end: 20081121
  8. ZOLOFT [Concomitant]
     Indication: ANXIETY
     Dosage: UNK
     Dates: start: 20050101, end: 20100101

REACTIONS (5)
  - OEDEMA PERIPHERAL [None]
  - ERYTHEMA [None]
  - DEEP VEIN THROMBOSIS [None]
  - TENDERNESS [None]
  - PAIN IN EXTREMITY [None]
